FAERS Safety Report 9411742 (Version 1)
Quarter: 2013Q2

REPORT INFORMATION
  Report Type: Spontaneous
  Country: US (occurrence: None)
  Receive Date: 20130507
  Receipt Date: 20130507
  Transmission Date: 20140414
  Serious: Yes (Other)
  Sender: FDA-Public Use
  Company Number: ADR-2013-00162

PATIENT
  Age: 40 Year
  Sex: Male

DRUGS (2)
  1. LIORESAL INTRATHECAL (BACLOFEN INJECTION) [Suspect]
  2. MORPHINE [Concomitant]

REACTIONS (4)
  - Device malfunction [None]
  - Drug hypersensitivity [None]
  - Pain [None]
  - Device dislocation [None]
